FAERS Safety Report 23455816 (Version 1)
Quarter: 2024Q1

REPORT INFORMATION
  Report Type: Spontaneous
  Country: US (occurrence: US)
  Receive Date: 20240130
  Receipt Date: 20240130
  Transmission Date: 20240409
  Serious: No
  Sender: FDA-Public Use
  Company Number: US-002147023-NVSC2024US018241

PATIENT
  Age: 56 Year

DRUGS (2)
  1. LEQVIO [Suspect]
     Active Substance: INCLISIRAN SODIUM
     Indication: Hyperlipidaemia
     Dosage: 284 MG DAY 1, DAY 90 AND DAY 270
     Route: 058
     Dates: start: 20230101, end: 20231201
  2. LEQVIO [Suspect]
     Active Substance: INCLISIRAN SODIUM
     Indication: Arteriosclerosis

REACTIONS (2)
  - Blood cholesterol decreased [Not Recovered/Not Resolved]
  - Drug ineffective [Not Recovered/Not Resolved]
